FAERS Safety Report 5705714-9 (Version None)
Quarter: 2008Q2

REPORT INFORMATION
  Report Type: 
  Country: None (occurrence: None)
  Receive Date: 20080415
  Receipt Date: 20080409
  Transmission Date: 20081010
  Serious: Yes (Hospitalization)
  Sender: FDA-Public Use
  Company Number: A0721909A

PATIENT
  Age: 39 Year
  Sex: Male

DRUGS (3)
  1. ADVAIR HFA [Suspect]
     Indication: CHRONIC OBSTRUCTIVE PULMONARY DISEASE
     Route: 055
     Dates: start: 20060101
  2. VICODIN [Concomitant]
  3. PERCOCET [Concomitant]

REACTIONS (8)
  - AMNESIA [None]
  - CHRONIC OBSTRUCTIVE PULMONARY DISEASE [None]
  - CONVULSION [None]
  - DIZZINESS [None]
  - NERVOUSNESS [None]
  - RESUSCITATION [None]
  - TONGUE HAEMORRHAGE [None]
  - VISION BLURRED [None]
